FAERS Safety Report 5261034-0 (Version None)
Quarter: 2007Q1

REPORT INFORMATION
  Report Type: 
  Country: None (occurrence: None)
  Receive Date: 20070309
  Receipt Date: 20070228
  Transmission Date: 20070707
  Serious: Yes (Hospitalization)
  Sender: FDA-Public Use
  Company Number: 2006UW10733

PATIENT
  Age: 9672 Day
  Sex: Female
  Weight: 81.8 kg

DRUGS (7)
  1. SEROQUEL [Suspect]
     Indication: INSOMNIA
     Route: 048
     Dates: start: 20030401, end: 20030701
  2. SEROQUEL [Suspect]
     Indication: BIPOLAR DISORDER
     Route: 048
     Dates: start: 20030401, end: 20030701
  3. SEROQUEL [Suspect]
     Dosage: 25 - 200 MG
     Route: 048
     Dates: start: 20040601, end: 20051201
  4. SEROQUEL [Suspect]
     Dosage: 25 - 200 MG
     Route: 048
     Dates: start: 20040601, end: 20051201
  5. SEROQUEL [Suspect]
     Route: 048
     Dates: start: 20050601, end: 20051218
  6. SEROQUEL [Suspect]
     Route: 048
     Dates: start: 20050601, end: 20051218
  7. RISPERDAL [Suspect]
     Dosage: 0.5 MG
     Dates: start: 20050201, end: 20050601

REACTIONS (1)
  - NEUROLEPTIC MALIGNANT SYNDROME [None]
